FAERS Safety Report 6414205-1 (Version None)
Quarter: 2009Q4

REPORT INFORMATION
  Report Type: 
  Country: None (occurrence: None)
  Receive Date: 20091026
  Receipt Date: 20091013
  Transmission Date: 20100525
  Serious: Yes (Other)
  Sender: FDA-Public Use
  Company Number: US-PFIZER INC-2006147798

PATIENT
  Sex: Female

DRUGS (7)
  1. DEPO-PROVERA [Suspect]
     Indication: CONTRACEPTION
     Dosage: UNK
     Route: 030
     Dates: start: 20010101, end: 20051001
  2. ZITHROMAX [Concomitant]
     Dosage: UNK
     Dates: start: 20021101
  3. ZITHROMAX [Concomitant]
     Dosage: UNK
     Dates: start: 20030801
  4. LEVAQUIN [Concomitant]
     Dosage: UNK
     Dates: start: 20021101
  5. DOXYCYCLINE [Concomitant]
     Dosage: 100 MG, UNK
     Dates: start: 20050101
  6. BUPAP [Concomitant]
     Dosage: 650/50MG
     Dates: start: 20050101
  7. METROGEL [Concomitant]
     Dosage: UNK
     Dates: start: 20051201

REACTIONS (4)
  - DEPRESSION [None]
  - INFERTILITY FEMALE [None]
  - IRRITABLE BOWEL SYNDROME [None]
  - OSTEOPOROSIS [None]
